FAERS Safety Report 18296357 (Version 1)
Quarter: 2020Q3

REPORT INFORMATION
  Report Type: Spontaneous
  Country: US (occurrence: US)
  Receive Date: 20200922
  Receipt Date: 20200922
  Transmission Date: 20201103
  Serious: No
  Sender: FDA-Public Use
  Company Number: US-VIVUS, INC.-2020V1000167

PATIENT
  Age: 63 Year
  Sex: Female
  Weight: 98.97 kg

DRUGS (4)
  1. ESTRADIOL. [Concomitant]
     Active Substance: ESTRADIOL
     Indication: HORMONE REPLACEMENT THERAPY
     Route: 048
  2. ASA [Concomitant]
     Active Substance: ASPIRIN
     Indication: PAIN
     Route: 048
  3. QSYMIA [Suspect]
     Active Substance: PHENTERMINE HYDROCHLORIDE\TOPIRAMATE
     Indication: WEIGHT DECREASED
     Dosage: TOOK 9 CAPSULES
     Route: 048
     Dates: start: 20200625
  4. VALSARTEN/HCTZ [Concomitant]
     Indication: HYPERTENSION
     Route: 048

REACTIONS (6)
  - Palpitations [Recovered/Resolved]
  - Nervousness [Recovered/Resolved]
  - Pain in jaw [Recovered/Resolved]
  - Hunger [Recovered/Resolved]
  - Hyperhidrosis [Recovered/Resolved]
  - Agitation [Recovered/Resolved]
